FAERS Safety Report 25433173 (Version 1)
Quarter: 2025Q2

REPORT INFORMATION
  Report Type: Spontaneous
  Country: BR (occurrence: BR)
  Receive Date: 20250613
  Receipt Date: 20250613
  Transmission Date: 20250716
  Serious: Yes (Congenital Anomaly, Other)
  Sender: PFIZER
  Company Number: BR-PFIZER INC-PV202500070241

PATIENT
  Sex: Male
  Weight: 4.05 kg

DRUGS (1)
  1. TALIGLUCERASE ALFA [Suspect]
     Active Substance: TALIGLUCERASE ALFA
     Route: 064

REACTIONS (2)
  - Ventricular septal defect [Recovered/Resolved]
  - Maternal exposure during pregnancy [Unknown]

NARRATIVE: CASE EVENT DATE: 20250101
